FAERS Safety Report 5488148-4 (Version None)
Quarter: 2007Q4

REPORT INFORMATION
  Report Type: 
  Country: None (occurrence: None)
  Receive Date: 20071017
  Receipt Date: 20071010
  Transmission Date: 20080405
  Serious: Yes (Hospitalization)
  Sender: FDA-Public Use
  Company Number: IT-ASTRAZENECA-2007SE05444

PATIENT
  Age: 29344 Day
  Sex: Female

DRUGS (5)
  1. SEROQUEL [Suspect]
     Indication: HALLUCINATION
     Route: 048
     Dates: start: 20061025, end: 20070920
  2. RIVASTIGMINA (ACID TARTRATE) [Concomitant]
  3. ACETYLSALICYLIC ACID [Concomitant]
  4. GLICLAZIDE [Concomitant]
  5. CITALOPRAM HYDROBROMIDE [Concomitant]

REACTIONS (1)
  - DIPLOPIA [None]
